FAERS Safety Report 21622055 (Version 1)
Quarter: 2022Q4

REPORT INFORMATION
  Report Type: Spontaneous
  Country: DE (occurrence: DE)
  Receive Date: 20221121
  Receipt Date: 20221121
  Transmission Date: 20230113
  Serious: Yes (Hospitalization)
  Sender: FDA-Public Use
  Company Number: DE-ADRED-08374-01

PATIENT
  Age: 88 Year
  Sex: Male
  Weight: 70 kg

DRUGS (12)
  1. DONEPEZIL [Suspect]
     Active Substance: DONEPEZIL
     Indication: Product used for unknown indication
     Dosage: 10 MILLIGRAM, QD (10 MG, 0-0-1-0)
     Route: 065
  2. ESCITALOPRAM [Suspect]
     Active Substance: ESCITALOPRAM OXALATE
     Indication: Product used for unknown indication
     Dosage: 5 MILLIGRAM, QD (5 MG, 1-0-0-0)
     Route: 065
  3. ASPIRIN [Suspect]
     Active Substance: ASPIRIN
     Indication: Product used for unknown indication
     Dosage: 100 MILLIGRAM, QD (100 MG, 0-1-0-0)
     Route: 065
  4. DALTEPARIN [Suspect]
     Active Substance: DALTEPARIN
     Indication: Product used for unknown indication
     Dosage: 5000 INTERNATIONAL UNIT,QD(5000 IU /DAY,0-0-1-0)
     Route: 058
  5. MIRTAZAPINE [Concomitant]
     Active Substance: MIRTAZAPINE
     Dosage: 15 MILLIGRAM, QD (15 MG, 0-0-0-1)
     Route: 065
  6. SIMVASTATIN [Concomitant]
     Active Substance: SIMVASTATIN
     Dosage: 40 MILLIGRAM, QD (40 MG, 0-0-1-0)
     Route: 065
  7. RAMIPRIL [Concomitant]
     Active Substance: RAMIPRIL
     Dosage: 5 MILLIGRAM, QD (5 MG, 1-0-0-0)
     Route: 065
  8. POLYETHYLENE GLYCOL\POTASSIUM CHLORIDE\SODIUM BICARBONATE\SODIUM CHLOR [Concomitant]
     Active Substance: POLYETHYLENE GLYCOL\POTASSIUM CHLORIDE\SODIUM BICARBONATE\SODIUM CHLORIDE
     Dosage: SCHEME
     Route: 065
  9. ALLOPURINOL [Concomitant]
     Active Substance: ALLOPURINOL
     Dosage: 300 MILLIGRAM, QD (300 MG, 1-0-0-0)
     Route: 065
  10. FENTANYL [Concomitant]
     Active Substance: FENTANYL
     Dosage: 12 MICROGRAM (12 ?G, SCHEME)
     Route: 062
  11. METAMIZOLE [Concomitant]
     Active Substance: METAMIZOLE
     Dosage: 500 MILLIGRAM, QID (500 MG, 1-1-1-1)
     Route: 065
  12. MELPERONE [Concomitant]
     Active Substance: MELPERONE
     Dosage: 5 MILLILITER, TID (5 ML, 1-1-1-0)
     Route: 065

REACTIONS (8)
  - General physical health deterioration [Unknown]
  - Renal impairment [Unknown]
  - Dementia [Unknown]
  - Systemic infection [Unknown]
  - Confusional state [Unknown]
  - Hypotension [Unknown]
  - Anaemia [Unknown]
  - Haematemesis [Unknown]
